FAERS Safety Report 9476036 (Version 1)
Quarter: 2013Q3

REPORT INFORMATION
  Report Type: Spontaneous
  Country: CN (occurrence: CN)
  Receive Date: 20130826
  Receipt Date: 20130826
  Transmission Date: 20140515
  Serious: Yes (Hospitalization)
  Sender: FDA-Public Use
  Company Number: CN-NOVOPROD-385434

PATIENT
  Age: 59 Year
  Sex: Female
  Weight: 45 kg

DRUGS (2)
  1. NOVOLIN R [Suspect]
     Indication: LACUNAR INFARCTION
     Dosage: 2 IU, SINGLE
     Route: 042
     Dates: start: 20121113, end: 20121113
  2. GLUCOSE [Concomitant]
     Indication: LACUNAR INFARCTION
     Dosage: UNK UNK, QD
     Route: 042
     Dates: start: 20121113

REACTIONS (3)
  - Chills [Recovering/Resolving]
  - Dyspnoea [Recovering/Resolving]
  - Pyrexia [Recovering/Resolving]
